FAERS Safety Report 14715533 (Version 5)
Quarter: 2020Q2

REPORT INFORMATION
  Report Type: Report from Study
  Country: CA (occurrence: CA)
  Receive Date: 20180404
  Receipt Date: 20200529
  Transmission Date: 20200713
  Serious: Yes (Other)
  Sender: FDA-Public Use
  Company Number: CA-INCYTE CORPORATION-2018IN000608

PATIENT

DRUGS (6)
  1. JAKAVI [Suspect]
     Active Substance: RUXOLITINIB
     Dosage: 15 MG, BID
     Route: 048
     Dates: start: 20180309
  2. HYDROXYCARBAMIDE [Concomitant]
     Active Substance: HYDROXYUREA
     Dosage: 1000 MG, QD (FOR ONE WEEK)
     Route: 065
  3. HYDROXYCARBAMIDE [Concomitant]
     Active Substance: HYDROXYUREA
     Dosage: 500 MG, QD
     Route: 065
  4. JAKAVI [Suspect]
     Active Substance: RUXOLITINIB
     Indication: MYELOFIBROSIS
     Dosage: 10 MG, BID
     Route: 048
     Dates: start: 20180112
  5. TACROLIMUS. [Concomitant]
     Active Substance: TACROLIMUS
     Indication: PRODUCT USED FOR UNKNOWN INDICATION
     Dosage: UNK
     Route: 065
  6. HYDROXYCARBAMIDE [Concomitant]
     Active Substance: HYDROXYUREA
     Indication: PRODUCT USED FOR UNKNOWN INDICATION
     Dosage: UNK
     Route: 065

REACTIONS (20)
  - Blood count abnormal [Unknown]
  - Influenza [Unknown]
  - Pruritus [Recovered/Resolved]
  - Splenic infarction [Unknown]
  - Paraesthesia [Recovered/Resolved]
  - Mental disorder [Unknown]
  - Hepatic enzyme increased [Unknown]
  - Pain [Recovered/Resolved]
  - Platelet count increased [Unknown]
  - Splenomegaly [Not Recovered/Not Resolved]
  - White blood cell count abnormal [Unknown]
  - Change of bowel habit [Unknown]
  - Night sweats [Recovered/Resolved]
  - Abdominal distension [Recovered/Resolved]
  - Nasopharyngitis [Unknown]
  - Plantar fasciitis [Unknown]
  - Flatulence [Unknown]
  - Malaise [Unknown]
  - Blood potassium increased [Unknown]
  - Gout [Unknown]
